FAERS Safety Report 17037904 (Version 1)
Quarter: 2019Q4

REPORT INFORMATION
  Report Type: Spontaneous
  Country: US (occurrence: US)
  Receive Date: 20191115
  Receipt Date: 20191115
  Transmission Date: 20200122
  Serious: Yes (Death)
  Sender: FDA-Public Use
  Company Number: US-UCBSA-2019047572

PATIENT
  Age: 57 Year
  Sex: Male

DRUGS (1)
  1. VIMPAT [Suspect]
     Active Substance: LACOSAMIDE
     Indication: EPILEPSY
     Dosage: 150 MILLIGRAM, 2X/DAY (BID)
     Dates: end: 20191110

REACTIONS (2)
  - Myocardial infarction [Fatal]
  - Off label use [Unknown]

NARRATIVE: CASE EVENT DATE: 20191110
